FAERS Safety Report 5932660-8 (Version None)
Quarter: 2008Q4

REPORT INFORMATION
  Report Type: 
  Country: None (occurrence: None)
  Receive Date: 20081023
  Receipt Date: 20060331
  Transmission Date: 20090506
  Serious: Yes (Hospitalization, Other)
  Sender: FDA-Public Use
  Company Number: 2006AL001961

PATIENT
  Age: 78 Year
  Sex: Female

DRUGS (6)
  1. CITALOPRAM HYDROBROMIDE [Suspect]
     Indication: DEPRESSION
     Dosage: 10 MG;PO
     Route: 048
     Dates: start: 20060131, end: 20060222
  2. BENDROFLUAZIDE [Concomitant]
  3. ALBUTEROL SULFATE [Concomitant]
  4. AMLODIPINE [Concomitant]
  5. ATROVENT [Concomitant]
  6. TRIMETHOPRIM [Concomitant]

REACTIONS (2)
  - CONFUSIONAL STATE [None]
  - HYPONATRAEMIA [None]
